FAERS Safety Report 20406636 (Version 1)
Quarter: 2022Q1

REPORT INFORMATION
  Report Type: Spontaneous
  Country: US (occurrence: US)
  Receive Date: 20220131
  Receipt Date: 20220131
  Transmission Date: 20220423
  Serious: Yes (Hospitalization, Other)
  Sender: FDA-Public Use
  Company Number: US-BIOVITRUM-2022US01030

PATIENT
  Age: 0 Year
  Sex: Male

DRUGS (1)
  1. SYNAGIS [Suspect]
     Active Substance: PALIVIZUMAB
     Indication: Antiviral prophylaxis
     Dosage: CUMULATIVE DOSE TO FIRST REACTION: 45 MG/KG
     Route: 030
     Dates: start: 202110

REACTIONS (1)
  - Ventricular septal defect [Unknown]

NARRATIVE: CASE EVENT DATE: 20220107
